FAERS Safety Report 9369516 (Version 2)
Quarter: 2013Q3

REPORT INFORMATION
  Report Type: Spontaneous
  Country: US (occurrence: US)
  Receive Date: 20130626
  Receipt Date: 20130809
  Transmission Date: 20140515
  Serious: No
  Sender: FDA-Public Use
  Company Number: US-PFIZER INC-2013185683

PATIENT
  Age: 57 Year
  Sex: Male
  Weight: 88.44 kg

DRUGS (1)
  1. TESTOSTERONE CIPIONATE [Suspect]
     Indication: BLOOD TESTOSTERONE DECREASED
     Dosage: UNK

REACTIONS (2)
  - White blood cell count increased [Unknown]
  - Red blood cell count increased [Unknown]
